FAERS Safety Report 6518027-2 (Version None)
Quarter: 2009Q4

REPORT INFORMATION
  Report Type: 
  Country: None (occurrence: None)
  Receive Date: 20091224
  Receipt Date: 20091222
  Transmission Date: 20100525
  Serious: Yes (Life-Threatening, Hospitalization)
  Sender: FDA-Public Use
  Company Number: SE-ROCHE-659942

PATIENT

DRUGS (2)
  1. CAPECITABINE [Suspect]
     Dosage: DAY 1-14 EVERY 3 WEEKS
     Route: 048
     Dates: start: 20090818, end: 20090824
  2. TAXOTERE [Suspect]
     Indication: OESOPHAGEAL CARCINOMA
     Dosage: FORM: INFUSION, ON CYCLE DAY 1,8 AND 15 OR CYCLE DAY 1 AND 8 IN ALTERNATING 3 WEEK
     Route: 042

REACTIONS (1)
  - ACQUIRED TRACHEO-OESOPHAGEAL FISTULA [None]
